FAERS Safety Report 6998301-6 (Version None)
Quarter: 2010Q3

REPORT INFORMATION
  Report Type: 
  Country: None (occurrence: None)
  Receive Date: 20100920
  Receipt Date: 20100127
  Transmission Date: 20110219
  Serious: No
  Sender: FDA-Public Use
  Company Number: US-ASTRAZENECA-2010SE03753

PATIENT
  Age: 25505 Day
  Sex: Male
  Weight: 72.6 kg

DRUGS (2)
  1. SEROQUEL XR [Suspect]
     Indication: BIPOLAR I DISORDER
     Route: 048
     Dates: start: 20100119
  2. KLONOPIN [Concomitant]
     Route: 048
     Dates: start: 20100119

REACTIONS (2)
  - DRUG INEFFECTIVE [None]
  - GASTROOESOPHAGEAL REFLUX DISEASE [None]
